FAERS Safety Report 24444103 (Version 2)
Quarter: 2024Q4

REPORT INFORMATION
  Report Type: Report from Study
  Country: US (occurrence: US)
  Receive Date: 20241016
  Receipt Date: 20241017
  Transmission Date: 20250115
  Serious: No
  Sender: ROCHE
  Company Number: US-ROCHE-2574866

PATIENT
  Age: 35 Year
  Sex: Female

DRUGS (5)
  1. RITUXAN [Suspect]
     Active Substance: RITUXIMAB
     Indication: Pulmonary vasculitis
     Dosage: ON DAY 1 AND 15 DATE OF SERVICE: , 8/AUG/18, 16/AUG/18, ONCE A WEEK FOR 4 WEEKS, ONCE A WEEK FOR 4 W
     Route: 042
     Dates: start: 20180801
  2. RITUXAN [Suspect]
     Active Substance: RITUXIMAB
     Indication: Asthma
     Route: 042
  3. RITUXAN [Suspect]
     Active Substance: RITUXIMAB
     Indication: Immunodeficiency
  4. RITUXAN [Suspect]
     Active Substance: RITUXIMAB
     Indication: Hidradenitis
  5. RITUXAN [Suspect]
     Active Substance: RITUXIMAB
     Indication: Eosinophilic oesophagitis

REACTIONS (2)
  - Off label use [Unknown]
  - No adverse event [Unknown]
